FAERS Safety Report 6757579-4 (Version None)
Quarter: 2010Q2

REPORT INFORMATION
  Report Type: 
  Country: None (occurrence: None)
  Receive Date: 20100607
  Receipt Date: 20100531
  Transmission Date: 20101027
  Serious: Yes (Death, Hospitalization, Other)
  Sender: FDA-Public Use
  Company Number: FR-BAYER-201027158GPV

PATIENT
  Age: 75 Year
  Sex: Male

DRUGS (1)
  1. NEXAVAR [Suspect]
     Indication: HEPATIC NEOPLASM MALIGNANT
     Dosage: UNIT DOSE: 200 MG
     Route: 048
     Dates: start: 20090613, end: 20100120

REACTIONS (6)
  - DEATH [None]
  - DRUG INEFFECTIVE [None]
  - ENCEPHALOPATHY [None]
  - HYPERNATRAEMIA [None]
  - PRURITUS GENERALISED [None]
  - RENAL FAILURE ACUTE [None]
